FAERS Safety Report 5994904-6 (Version None)
Quarter: 2008Q4

REPORT INFORMATION
  Report Type: 
  Country: None (occurrence: None)
  Receive Date: 20081212
  Receipt Date: 20080917
  Transmission Date: 20090506
  Serious: Yes (Other)
  Sender: FDA-Public Use
  Company Number: US-ABBOTT-08P-163-0476920-00

PATIENT
  Sex: Male

DRUGS (2)
  1. HUMIRA [Suspect]
     Indication: PSORIATIC ARTHROPATHY
     Route: 050
     Dates: end: 20080911
  2. HUMIRA [Suspect]
     Indication: PSORIASIS

REACTIONS (2)
  - IMMUNOSUPPRESSION [None]
  - MALIGNANT MELANOMA [None]
